FAERS Safety Report 5484184-2 (Version None)
Quarter: 2007Q4

REPORT INFORMATION
  Report Type: 
  Country: None (occurrence: None)
  Receive Date: 20071012
  Receipt Date: 20070928
  Transmission Date: 20080405
  Serious: Yes (Life-Threatening, Hospitalization)
  Sender: FDA-Public Use
  Company Number: JP-GENENTECH-249214

PATIENT
  Sex: Female

DRUGS (4)
  1. BEVACIZUMAB [Suspect]
     Indication: COLON CANCER
     Dosage: UNK, Q2W
     Route: 042
     Dates: start: 20070907, end: 20070921
  2. FLUOROURACIL [Concomitant]
     Indication: COLON CANCER
  3. OXALIPLATIN [Concomitant]
     Indication: COLON CANCER
  4. LEUCOVORIN [Concomitant]
     Indication: COLON CANCER

REACTIONS (1)
  - INTERSTITIAL LUNG DISEASE [None]
